FAERS Safety Report 21962009 (Version 1)
Quarter: 2023Q1

REPORT INFORMATION
  Report Type: Spontaneous
  Country: US (occurrence: US)
  Receive Date: 20230207
  Receipt Date: 20230207
  Transmission Date: 20230418
  Serious: Yes (Other)
  Sender: FDA-Public Use
  Company Number: US-PFIZER INC-PV202300021382

PATIENT
  Age: 5 Year
  Sex: Female

DRUGS (3)
  1. DOXORUBICIN HYDROCHLORIDE [Suspect]
     Active Substance: DOXORUBICIN HYDROCHLORIDE
     Indication: Hepatoblastoma
     Dosage: UNK
  2. VINCRISTINE SULFATE [Suspect]
     Active Substance: VINCRISTINE SULFATE
     Indication: Hepatoblastoma
     Dosage: UNK
  3. CISPLATIN [Suspect]
     Active Substance: CISPLATIN
     Indication: Hepatoblastoma
     Dosage: UNK

REACTIONS (2)
  - Deafness [Unknown]
  - Off label use [Unknown]

NARRATIVE: CASE EVENT DATE: 20210301
